FAERS Safety Report 21781294 (Version 1)
Quarter: 2022Q4

REPORT INFORMATION
  Report Type: Spontaneous
  Country: US (occurrence: US)
  Receive Date: 20221227
  Receipt Date: 20221227
  Transmission Date: 20230112
  Serious: Yes (Hospitalization)
  Sender: FDA-Public Use
  Company Number: US-ASTELLAS-2022US039225

PATIENT
  Sex: Male
  Weight: 141.9 kg

DRUGS (5)
  1. PADCEV [Suspect]
     Active Substance: ENFORTUMAB VEDOTIN-EJFV
     Indication: Bladder cancer stage IV
     Route: 065
     Dates: start: 20221011
  2. PADCEV [Suspect]
     Active Substance: ENFORTUMAB VEDOTIN-EJFV
     Indication: Transitional cell carcinoma
  3. INSULIN NOS [Concomitant]
     Active Substance: INSULIN NOS
     Indication: Hyperglycaemia
     Dosage: UNK UNK, UNKNOWN FREQ.
     Route: 065
  4. INSULIN NOS [Concomitant]
     Active Substance: INSULIN NOS
     Dosage: UNK UNK, UNKNOWN FREQ.
     Route: 065
     Dates: start: 20221011
  5. INSULIN NOS [Concomitant]
     Active Substance: INSULIN NOS
     Dosage: 6 UNITS, UNKNOWN FREQ.
     Route: 065
     Dates: start: 20221025

REACTIONS (1)
  - Hyperglycaemia [Not Recovered/Not Resolved]
